APPROVED DRUG PRODUCT: PERMETHRIN
Active Ingredient: PERMETHRIN
Strength: 5%
Dosage Form/Route: CREAM;TOPICAL
Application: A076369 | Product #001 | TE Code: AB
Applicant: PADAGIS ISRAEL PHARMACEUTICALS LTD
Approved: Apr 21, 2003 | RLD: No | RS: Yes | Type: RX